FAERS Safety Report 10195971 (Version 2)
Quarter: 2014Q2

REPORT INFORMATION
  Report Type: Report from Study
  Country: US (occurrence: US)
  Receive Date: 20140527
  Receipt Date: 20140527
  Transmission Date: 20141212
  Serious: No
  Sender: FDA-Public Use
  Company Number: PHEH2014US006308

PATIENT
  Sex: Female

DRUGS (2)
  1. TASIGNA [Suspect]
     Indication: LYMPHOPROLIFERATIVE DISORDER
     Dosage: 300 MG, BID
     Route: 048
  2. TASIGNA [Suspect]
     Indication: OFF LABEL USE

REACTIONS (5)
  - Malaise [Unknown]
  - Nausea [Unknown]
  - Fatigue [Unknown]
  - Drug intolerance [Unknown]
  - Incorrect dose administered [Unknown]
